FAERS Safety Report 5622405-3 (Version None)
Quarter: 2008Q1

REPORT INFORMATION
  Report Type: 
  Country: None (occurrence: None)
  Receive Date: 20080114
  Receipt Date: 20070703
  Transmission Date: 20080703
  Serious: Yes (Hospitalization)
  Sender: FDA-Public Use
  Company Number: A03200704444

PATIENT
  Age: 73 Year
  Sex: Male
  Weight: 54.42 kg

DRUGS (8)
  1. PLAVIX [Suspect]
     Indication: CARDIAC FAILURE CONGESTIVE
     Dosage: 75 MG, QD, ORAL
     Route: 048
     Dates: start: 20040101
  2. CLOPIDOGREL [Suspect]
     Indication: CARDIAC FAILURE CONGESTIVE
     Dosage: ORAL
     Route: 048
     Dates: start: 20060101
  3. DIGOXIN [Concomitant]
  4. LEVOTHYROXINE SODIUM [Concomitant]
  5. ISOSORBIDE MONONITRATE [Concomitant]
  6. RAMIPRIL [Concomitant]
  7. CARVEDILOL [Concomitant]
  8. TAMSULOSIN HCL [Concomitant]

REACTIONS (3)
  - FATIGUE [None]
  - MALAISE [None]
  - MYOCARDIAL INFARCTION [None]
